FAERS Safety Report 18209446 (Version 1)
Quarter: 2020Q3

REPORT INFORMATION
  Report Type: Report from Study
  Country: DE (occurrence: DE)
  Receive Date: 20200828
  Receipt Date: 20200828
  Transmission Date: 20201103
  Serious: Yes (Death, Hospitalization)
  Sender: FDA-Public Use
  Company Number: DE-PORTOLA PHARMACEUTICALS, INC.-2019DE000006

PATIENT
  Age: 81 Year
  Sex: Female

DRUGS (11)
  1. XIPAMID RATIOPHARM [Concomitant]
     Dosage: 10 MG, QD
  2. ANDEXXA [Suspect]
     Active Substance: ANDEXANET ALFA
     Dosage: 480 MG, SINGLE INFUSION (4 MCG/MIN)
     Route: 042
     Dates: start: 20190108, end: 20190108
  3. APIXABAN [Concomitant]
     Active Substance: APIXABAN
     Dosage: 10 MG, QD (2X 5MG/DAY)
     Dates: start: 201811, end: 20190108
  4. RAMIPRIL RATIOPHARM [Concomitant]
     Active Substance: RAMIPRIL
     Dosage: 10 MG, QD
  5. XELEVIA [Concomitant]
     Active Substance: SITAGLIPTIN PHOSPHATE
     Dosage: 50 MG, QD
  6. NOVALGIN (METAMIZOLE SODIUM) [Concomitant]
     Active Substance: METAMIZOLE SODIUM
  7. ANDEXXA [Suspect]
     Active Substance: ANDEXANET ALFA
     Indication: PROCOAGULANT THERAPY
     Dosage: 400 MG, SINGLE BOLUS
     Route: 040
     Dates: start: 20190108, end: 20190108
  8. CEFPODOXIME [Concomitant]
     Active Substance: CEFPODOXIME
     Indication: URINARY TRACT INFECTION
     Dosage: UNK
     Dates: start: 20190112, end: 20190115
  9. BISOPROLOL RATIOPHARM [Concomitant]
     Active Substance: BISOPROLOL
     Dosage: 2.5 MG, QD
  10. CORIFEO [Concomitant]
     Dosage: 10 MG, BID
  11. SIMVAHEXAL [Concomitant]
     Active Substance: SIMVASTATIN
     Dosage: 40 MG, QD

REACTIONS (1)
  - Ischaemic stroke [Fatal]

NARRATIVE: CASE EVENT DATE: 20190123
